FAERS Safety Report 11760685 (Version 1)
Quarter: 2015Q4

REPORT INFORMATION
  Report Type: Spontaneous
  Country: US (occurrence: US)
  Receive Date: 20151120
  Receipt Date: 20151120
  Transmission Date: 20160304
  Serious: Yes (Hospitalization, Other)
  Sender: FDA-Public Use
  Company Number: US-ELI_LILLY_AND_COMPANY-US201211008474

PATIENT
  Sex: Female

DRUGS (3)
  1. AZITHROMYCIN [Concomitant]
     Active Substance: AZITHROMYCIN ANHYDROUS
  2. FORTEO [Suspect]
     Active Substance: TERIPARATIDE
     Dosage: UNK
     Dates: end: 20121024
  3. AMOXICILLIN AND CLAVULA. POTASSIUM /02043401/ [Concomitant]

REACTIONS (10)
  - Dyspnoea [Unknown]
  - Drug hypersensitivity [Recovered/Resolved]
  - Urticaria [Unknown]
  - Heart rate increased [Recovered/Resolved]
  - Sinusitis [Recovered/Resolved]
  - Nausea [Recovered/Resolved]
  - Paraesthesia [Unknown]
  - Dyspnoea [Recovered/Resolved]
  - Hyperhidrosis [Recovered/Resolved]
  - Rhinorrhoea [Recovered/Resolved]
